FAERS Safety Report 5672246-6 (Version None)
Quarter: 2008Q1

REPORT INFORMATION
  Report Type: 
  Country: None (occurrence: None)
  Receive Date: 20080319
  Receipt Date: 20080310
  Transmission Date: 20080703
  Serious: Yes (Other)
  Sender: FDA-Public Use
  Company Number: GB-AVENTIS-200812321GDDC

PATIENT
  Age: 27 Year
  Sex: Male
  Weight: 75 kg

DRUGS (5)
  1. METRONIDAZOLE HCL [Suspect]
     Indication: ANAL FISSURE
     Route: 048
     Dates: start: 20080215, end: 20080217
  2. ANUSOL                             /00117301/ [Concomitant]
     Dosage: DOSE: 1 DOSE FORM TID
     Route: 061
     Dates: start: 20080128
  3. BUSCOPAN                           /00008702/ [Concomitant]
     Indication: IRRITABLE BOWEL SYNDROME
     Route: 048
     Dates: start: 20080208
  4. FLUCLOXACILLIN [Concomitant]
     Route: 048
     Dates: start: 20080215, end: 20080218
  5. LIDOCAINE [Concomitant]
     Indication: ANAL FISSURE
     Dosage: DOSE: UNK
     Route: 061
     Dates: start: 20080208

REACTIONS (5)
  - DELUSION [None]
  - DEPRESSION [None]
  - DIARRHOEA [None]
  - HALLUCINATION [None]
  - PARANOIA [None]
